FAERS Safety Report 6138240-6 (Version None)
Quarter: 2009Q1

REPORT INFORMATION
  Report Type: 
  Country: None (occurrence: None)
  Receive Date: 20090331
  Receipt Date: 20090320
  Transmission Date: 20090719
  Serious: Yes (Hospitalization)
  Sender: FDA-Public Use
  Company Number: B0517554B

PATIENT
  Sex: Female
  Weight: 76 kg

DRUGS (6)
  1. AVANDAMET [Suspect]
     Dosage: 4MG TWICE PER DAY
     Route: 048
     Dates: start: 20060801, end: 20080814
  2. AMARYL [Concomitant]
     Dosage: 4MG PER DAY
     Route: 048
     Dates: start: 20080304, end: 20080814
  3. ACEBUTOLOL [Concomitant]
     Dosage: 200MG PER DAY
     Route: 048
     Dates: end: 20080814
  4. SIMVASTATIN [Concomitant]
     Dosage: 20MG PER DAY
     Route: 048
  5. ADANCOR [Concomitant]
     Dosage: 10MG PER DAY
     Route: 065
  6. KARDEGIC [Concomitant]
     Dosage: 160MG PER DAY
     Route: 048

REACTIONS (5)
  - ISCHAEMIC STROKE [None]
  - LOSS OF CONSCIOUSNESS [None]
  - MALAISE [None]
  - MEMORY IMPAIRMENT [None]
  - MOTOR DYSFUNCTION [None]
